FAERS Safety Report 6359404-2 (Version None)
Quarter: 2009Q3

REPORT INFORMATION
  Report Type: 
  Country: None (occurrence: None)
  Receive Date: 20090917
  Receipt Date: 20090909
  Transmission Date: 20100115
  Serious: Yes (Hospitalization)
  Sender: FDA-Public Use
  Company Number: US-AMGEN-QUU363654

PATIENT
  Sex: Male

DRUGS (1)
  1. ENBREL [Suspect]
     Indication: ANKYLOSING SPONDYLITIS
     Dates: start: 20060101, end: 20090601

REACTIONS (5)
  - BLASTOMYCOSIS [None]
  - HOSPITALISATION [None]
  - OSTEOMYELITIS FUNGAL [None]
  - PROSTATITIS [None]
  - PYREXIA [None]
